FAERS Safety Report 10745449 (Version 4)
Quarter: 2015Q1

REPORT INFORMATION
  Report Type: Other
  Country: SE (occurrence: SE)
  Receive Date: 20150128
  Receipt Date: 20150317
  Transmission Date: 20150721
  Serious: Yes (Life-Threatening, Hospitalization, Disabling, Other)
  Sender: FDA-Public Use
  Company Number: SE-TAKEDA-2015TUS000936

PATIENT
  Age: 65 Year
  Sex: Male

DRUGS (5)
  1. ENTYVIO [Suspect]
     Active Substance: VEDOLIZUMAB
     Indication: CROHN^S DISEASE
     Dosage: 300 MG, UNK
     Route: 042
     Dates: start: 20141107, end: 20141124
  2. WARAN [Concomitant]
     Active Substance: WARFARIN SODIUM
     Indication: HEART VALVE REPLACEMENT
     Dosage: UNK
  3. BETAPRED [Concomitant]
     Active Substance: BETAMETHASONE SODIUM PHOSPHATE
     Indication: CROHN^S DISEASE
     Dosage: 8 MG, QD
     Route: 042
     Dates: start: 20141031, end: 20141105
  4. BETAPRED [Concomitant]
     Active Substance: BETAMETHASONE SODIUM PHOSPHATE
     Dosage: UNK
     Route: 048
     Dates: start: 20141106
  5. CALCICHEW D3 [Concomitant]
     Active Substance: CALCIUM\CHOLECALCIFEROL
     Indication: OSTEOPOROSIS
     Dosage: 500/400 MG/IU
     Route: 048
     Dates: start: 20140505

REACTIONS (4)
  - Endocarditis [Not Recovered/Not Resolved]
  - Cerebrovascular accident [Unknown]
  - Multi-organ failure [Unknown]
  - Staphylococcal sepsis [Not Recovered/Not Resolved]

NARRATIVE: CASE EVENT DATE: 20141213
